FAERS Safety Report 18350080 (Version 1)
Quarter: 2020Q4

REPORT INFORMATION
  Report Type: Spontaneous
  Country: CN (occurrence: CN)
  Receive Date: 20201006
  Receipt Date: 20201006
  Transmission Date: 20210114
  Serious: Yes (Hospitalization)
  Sender: FDA-Public Use
  Company Number: CN-PFIZER INC-2020381602

PATIENT
  Age: 69 Year
  Sex: Male
  Weight: 85 kg

DRUGS (2)
  1. TAZOCIN [Suspect]
     Active Substance: PIPERACILLIN SODIUM\TAZOBACTAM SODIUM
     Indication: ANTI-INFECTIVE THERAPY
  2. TAZOCIN [Suspect]
     Active Substance: PIPERACILLIN SODIUM\TAZOBACTAM SODIUM
     Indication: ANKYLOSING SPONDYLITIS
     Dosage: 4.5 G, 1X/DAY
     Route: 041
     Dates: start: 20200922, end: 20200922

REACTIONS (6)
  - Laryngeal oedema [Recovering/Resolving]
  - Hypertension [Unknown]
  - Heart rate increased [Unknown]
  - Headache [Recovering/Resolving]
  - Dyspnoea [Recovering/Resolving]
  - Chills [Recovering/Resolving]

NARRATIVE: CASE EVENT DATE: 20200922
